FAERS Safety Report 19020722 (Version 1)
Quarter: 2021Q1

REPORT INFORMATION
  Report Type: Spontaneous
  Country: AT (occurrence: AT)
  Receive Date: 20210317
  Receipt Date: 20210317
  Transmission Date: 20210420
  Serious: Yes (Hospitalization)
  Sender: FDA-Public Use
  Company Number: AT-JNJFOC-20210317855

PATIENT
  Sex: Male

DRUGS (4)
  1. ERLEADA [Suspect]
     Active Substance: APALUTAMIDE
     Indication: PROSTATE CANCER METASTATIC
     Route: 048
  2. HYDAL [Concomitant]
     Active Substance: HYDROMORPHONE HYDROCHLORIDE
     Route: 065
  3. QUETIAPINE. [Concomitant]
     Active Substance: QUETIAPINE
     Route: 065
  4. XGEVA [Concomitant]
     Active Substance: DENOSUMAB
     Route: 065

REACTIONS (7)
  - Prostatic specific antigen abnormal [Unknown]
  - Suicidal ideation [Unknown]
  - Oedema peripheral [Recovered/Resolved]
  - Delusional disorder, unspecified type [Unknown]
  - Aggression [Unknown]
  - Fall [Unknown]
  - Spinal pain [Unknown]

NARRATIVE: CASE EVENT DATE: 202005
